FAERS Safety Report 6494418-3 (Version None)
Quarter: 2009Q4

REPORT INFORMATION
  Report Type: 
  Country: None (occurrence: None)
  Receive Date: 20091214
  Receipt Date: 20090217
  Transmission Date: 20100525
  Serious: No
  Sender: FDA-Public Use
  Company Number: US-BRISTOL-MYERS SQUIBB COMPANY-14509277

PATIENT
  Age: 55 Year
  Sex: Male

DRUGS (2)
  1. ABILIFY [Suspect]
     Indication: DEPRESSION
     Dosage: REDUCED TO 5MG
  2. LEXAPRO [Concomitant]
     Indication: DEPRESSION

REACTIONS (1)
  - TREMOR [None]
